FAERS Safety Report 14128144 (Version 1)
Quarter: 2017Q4

REPORT INFORMATION
  Report Type: Spontaneous
  Country: US (occurrence: US)
  Receive Date: 20171026
  Receipt Date: 20171026
  Transmission Date: 20180321
  Serious: No
  Sender: FDA-Public Use
  Company Number: US-GALDERMA-US17008909

PATIENT
  Sex: 0

DRUGS (1)
  1. EPIDUO FORTE [Suspect]
     Active Substance: ADAPALENE\BENZOYL PEROXIDE
     Indication: ACNE
     Route: 061

REACTIONS (3)
  - Drug ineffective [Not Recovered/Not Resolved]
  - Skin hyperpigmentation [Not Recovered/Not Resolved]
  - Acne [Not Recovered/Not Resolved]
